FAERS Safety Report 9717927 (Version 2)
Quarter: 2014Q1

REPORT INFORMATION
  Report Type: Spontaneous
  Country: GB (occurrence: GB)
  Receive Date: 20131127
  Receipt Date: 20140103
  Transmission Date: 20141002
  Serious: Yes (Other)
  Sender: FDA-Public Use
  Company Number: GB-WATSON-2013-21902

PATIENT
  Age: 66 Year
  Sex: Female

DRUGS (2)
  1. ALLOPURINOL [Suspect]
     Indication: CHRONIC LYMPHOCYTIC LEUKAEMIA
     Dosage: 300 MG, UNKNOWN
     Route: 048
     Dates: start: 20131007, end: 20131024
  2. SEPTRIN [Suspect]
     Indication: PRODUCT USED FOR UNKNOWN INDICATION
     Dosage: UNK
     Route: 065

REACTIONS (7)
  - Rash generalised [Recovering/Resolving]
  - Hypoaesthesia [Recovering/Resolving]
  - Bedridden [Recovering/Resolving]
  - Chromaturia [Recovering/Resolving]
  - Pain [Recovering/Resolving]
  - Malaise [Recovering/Resolving]
  - Malaise [Recovering/Resolving]
